FAERS Safety Report 7934559-4 (Version None)
Quarter: 2011Q4

REPORT INFORMATION
  Report Type: 
  Country: None (occurrence: None)
  Receive Date: 20111122
  Receipt Date: 20111114
  Transmission Date: 20120403
  Serious: Yes (Hospitalization)
  Sender: FDA-Public Use
  Company Number: FR-BRISTOL-MYERS SQUIBB COMPANY-16233421

PATIENT
  Age: 62 Year
  Sex: Female

DRUGS (5)
  1. IRBESARTAN [Suspect]
     Dates: start: 19780101, end: 20111013
  2. SOTALOL HCL [Concomitant]
  3. ALLOPURINOL [Suspect]
     Dosage: ALLOPURINOL ALMUS   1DF:1TABS (200MG) 1 IN THE MORNING
  4. PROGRAF [Suspect]
     Dosage: 1DF:1 CAPS(1 MG) ALSO TAKEN 0.5MG ALSO TAKEN AS CONMED AT A DOSE OF 1.5MG AT MOR AND EVE
  5. PREVISCAN [Concomitant]
     Dosage: 1 IN MORNING AND AFTERNOON 3/4 IN THE EVENING

REACTIONS (1)
  - RHABDOMYOLYSIS [None]
